FAERS Safety Report 25906298 (Version 2)
Quarter: 2025Q4

REPORT INFORMATION
  Report Type: Spontaneous
  Country: SG (occurrence: SG)
  Receive Date: 20251010
  Receipt Date: 20251017
  Transmission Date: 20260118
  Serious: Yes (Other)
  Sender: MYLAN
  Company Number: SG-MYLANLABS-2025M1086311

PATIENT
  Age: 85 Year
  Sex: Female

DRUGS (8)
  1. PREGABALIN [Suspect]
     Active Substance: PREGABALIN
     Indication: Facial pain
     Dosage: UNK
  2. PREGABALIN [Suspect]
     Active Substance: PREGABALIN
     Indication: Oral pain
  3. IBUPROFEN [Suspect]
     Active Substance: IBUPROFEN
     Indication: Facial pain
     Dosage: UNK
  4. IBUPROFEN [Suspect]
     Active Substance: IBUPROFEN
     Indication: Oral pain
  5. NORTRIPTYLINE [Suspect]
     Active Substance: NORTRIPTYLINE
     Indication: Facial pain
     Dosage: UNK
  6. NORTRIPTYLINE [Suspect]
     Active Substance: NORTRIPTYLINE
     Indication: Oral pain
  7. FENTANYL [Suspect]
     Active Substance: FENTANYL
     Indication: Facial pain
     Dosage: HIGH-DOSE
  8. FENTANYL [Suspect]
     Active Substance: FENTANYL
     Indication: Oral pain

REACTIONS (1)
  - Drug ineffective [Unknown]
